FAERS Safety Report 5824329-5 (Version None)
Quarter: 2008Q3

REPORT INFORMATION
  Report Type: 
  Country: None (occurrence: None)
  Receive Date: 20080728
  Receipt Date: 20080717
  Transmission Date: 20090109
  Serious: Yes (Other)
  Sender: FDA-Public Use
  Company Number: US-JNJFOC-20080601822

PATIENT
  Sex: Female
  Weight: 72.58 kg

DRUGS (10)
  1. DURAGESIC-100 [Suspect]
     Indication: INTESTINAL OBSTRUCTION
     Route: 062
  2. DURAGESIC-100 [Suspect]
     Indication: PAIN
     Route: 062
  3. FENTANYL TRANSDERMAL SYSTEM [Suspect]
     Indication: PAIN
     Dosage: 2X100UG/HR PATCHES
     Route: 062
  4. FENTANYL TRANSDERMAL SYSTEM [Suspect]
     Route: 062
  5. FENTANYL TRANSDERMAL SYSTEM [Suspect]
     Indication: INTESTINAL OBSTRUCTION
     Route: 062
  6. OXYCODONE HCL [Concomitant]
     Indication: BREAKTHROUGH PAIN
     Route: 048
  7. SEROQUEL [Concomitant]
     Route: 048
  8. CLONAZEPAM [Concomitant]
     Indication: SLEEP DISORDER
     Dosage: 1 THREE OR FOUR TIMES A DAY
     Route: 048
  9. ACCUPRIL [Concomitant]
     Indication: BLOOD PRESSURE
     Route: 048
  10. ACTIQ [Concomitant]
     Indication: PAIN
     Route: 048

REACTIONS (6)
  - APPLICATION SITE ERYTHEMA [None]
  - HIATUS HERNIA [None]
  - INAPPROPRIATE SCHEDULE OF DRUG ADMINISTRATION [None]
  - INSOMNIA [None]
  - INTESTINAL POLYP [None]
  - WRONG TECHNIQUE IN DRUG USAGE PROCESS [None]
